FAERS Safety Report 14498539 (Version 5)
Quarter: 2018Q4

REPORT INFORMATION
  Report Type: Spontaneous
  Country: ES (occurrence: ES)
  Receive Date: 20180207
  Receipt Date: 20181022
  Transmission Date: 20190204
  Serious: Yes (Hospitalization, Other)
  Sender: FDA-Public Use
  Company Number: ES-PFIZER INC-2018051691

PATIENT
  Age: 64 Year
  Sex: Male
  Weight: 63 kg

DRUGS (33)
  1. DOXORUBICIN HCL [Suspect]
     Active Substance: DOXORUBICIN HYDROCHLORIDE
     Dosage: UNK
     Dates: start: 20170110
  2. RITUXIMAB. [Suspect]
     Active Substance: RITUXIMAB
     Indication: CHRONIC LYMPHOCYTIC LEUKAEMIA
     Dosage: DATE OF LAST DOSE PRIOR TO SAE:14/SEP/2016
     Dates: start: 2016
  3. SERTRALINE [Concomitant]
     Active Substance: SERTRALINE HYDROCHLORIDE
     Dosage: UNK
     Route: 065
     Dates: start: 20170620
  4. SERTRALINE [Concomitant]
     Active Substance: SERTRALINE HYDROCHLORIDE
     Dosage: 50 MG, UNK
     Dates: start: 20170620
  5. ALLOPURINOL. [Concomitant]
     Active Substance: ALLOPURINOL
     Dosage: 300 MG, UNK
     Route: 065
     Dates: start: 20160425, end: 20160425
  6. ALLOPURINOL. [Concomitant]
     Active Substance: ALLOPURINOL
     Dosage: 300 UNK, UNK
     Dates: start: 20170528
  7. SULFAMETHOXAZOLE AND TRIMETHOPRIM [Concomitant]
     Active Substance: SULFAMETHOXAZOLE\TRIMETHOPRIM
     Dosage: 960 MG, UNK, (DATE OF LAST DOSE PRIOR TO SAE: 14/SEP/2016))
     Route: 065
     Dates: start: 20170117
  8. DOXORUBICIN HCL [Suspect]
     Active Substance: DOXORUBICIN HYDROCHLORIDE
     Dosage: DATE OF LAST DOSE PRIOR TO SAE:14/SEP/2016
     Dates: start: 2016
  9. OMEPRAZOLE. [Concomitant]
     Active Substance: OMEPRAZOLE
     Dosage: 20 MG, DATE OF LAST DOSE PRIOR TO SAE: 14/SEP/2016
     Dates: start: 2007
  10. ACICLOVIR [Concomitant]
     Active Substance: ACYCLOVIR
     Dosage: DATE OF LAST DOSE PRIOR TO SAE: 14/SEP/2016
     Dates: start: 20170304
  11. MEGESTROL [Concomitant]
     Active Substance: MEGESTROL
     Dosage: 320 MG, DATE OF LAST DOSE PRIOR TO SAE:14/SEP/2016
     Route: 065
     Dates: start: 20170216
  12. METOCLOPRAMIDE. [Concomitant]
     Active Substance: METOCLOPRAMIDE
     Dosage: 30 MG, UNK
     Route: 065
     Dates: start: 20160425
  13. TRAMADOL. [Concomitant]
     Active Substance: TRAMADOL
     Dosage: 50 MG, UNK
     Route: 065
     Dates: start: 20170525
  14. SERTRALINE [Concomitant]
     Active Substance: SERTRALINE HYDROCHLORIDE
     Dosage: 50 MG, UNK
     Route: 065
     Dates: start: 20160620
  15. VINCRISTINE SULFATE. [Suspect]
     Active Substance: VINCRISTINE SULFATE
     Indication: CHRONIC LYMPHOCYTIC LEUKAEMIA
     Dosage: DATE OF LAST DOSE PRIOR TO SAE: 14/SEP/2016
     Dates: start: 2016
  16. PREDNISOLONE. [Suspect]
     Active Substance: PREDNISOLONE
     Indication: CHRONIC LYMPHOCYTIC LEUKAEMIA
     Dosage: DATE OF LAST DOSE PRIOR TO SAE:14/SEP/2016
     Dates: start: 2016
  17. BENDAMUSTINE [Suspect]
     Active Substance: BENDAMUSTINE
     Indication: CHRONIC LYMPHOCYTIC LEUKAEMIA
     Dosage: 70 MG/M2, MONTHLY(EVERY 28 DAYS, DATE OF LAST DOSE PRIOR TO SAE: 14SEP2016 AND ON 28APR2016)
     Route: 042
     Dates: start: 20160427
  18. OMEPRAZOLE. [Concomitant]
     Active Substance: OMEPRAZOLE
     Dosage: 20 MG, UNK
     Dates: start: 20160425
  19. MEGESTROL [Concomitant]
     Active Substance: MEGESTROL
     Dosage: UNK
     Route: 065
     Dates: start: 20170528
  20. VINCRISTINE SULFATE. [Suspect]
     Active Substance: VINCRISTINE SULFATE
     Indication: RICHTER^S SYNDROME
     Dosage: UNK
     Dates: start: 20170110
  21. CYCLOPHOSPHAMIDE. [Suspect]
     Active Substance: CYCLOPHOSPHAMIDE
     Indication: CHRONIC LYMPHOCYTIC LEUKAEMIA
     Dosage: UNK
     Dates: start: 20170110
  22. PREDNISOLONA /00016201/ [Suspect]
     Active Substance: PREDNISOLONE
     Indication: CHRONIC LYMPHOCYTIC LEUKAEMIA
     Dosage: DATE OF LAST DOSE PRIOR TO SAE: 14/SEP/2016
     Dates: start: 2016
  23. OBINUTUZUMAB. [Suspect]
     Active Substance: OBINUTUZUMAB
     Indication: CHRONIC LYMPHOCYTIC LEUKAEMIA
     Dosage: 1000 MG, MONTHLY (EVERY 28 DAYS, VIAL LAST DOSE PRIOR TO SAE 26APR2016 AND ON 14SEP2016)
     Route: 042
     Dates: start: 20160426
  24. ALLOPURINOL. [Concomitant]
     Active Substance: ALLOPURINOL
     Dosage: 300 MG, UNK
     Dates: end: 20160510
  25. METRONIDAZOLE. [Concomitant]
     Active Substance: METRONIDAZOLE
     Dosage: 750 MG, UNK
     Route: 065
     Dates: start: 20170525
  26. FLUCONAZOLE. [Concomitant]
     Active Substance: FLUCONAZOLE
     Dosage: DATE OF LAST DOSE PRIOR TO SAE:14/SEP/2016
     Route: 065
     Dates: start: 20170117
  27. CYCLOPHOSPHAMIDE. [Suspect]
     Active Substance: CYCLOPHOSPHAMIDE
     Indication: RICHTER^S SYNDROME
     Dosage: DATE OF LAST DOSE PRIOR TO SAE:14/SEP/2016
     Dates: start: 2016
  28. PREDNISOLONE. [Suspect]
     Active Substance: PREDNISOLONE
     Indication: RICHTER^S SYNDROME
     Dosage: UNK
     Dates: start: 20170110
  29. OMEPRAZOLE. [Concomitant]
     Active Substance: OMEPRAZOLE
     Dosage: DATE OF LAST DOSE PRIOR TO SAE: 14/SEP/2016
     Dates: start: 2007
  30. ALLOPURINOL. [Concomitant]
     Active Substance: ALLOPURINOL
     Dosage: 300 MG, UNK
     Route: 065
     Dates: start: 20170428
  31. POSACONAZOLE [Concomitant]
     Active Substance: POSACONAZOLE
     Dosage: 300 MG, DAILY
     Route: 065
     Dates: start: 20170528
  32. SERTRALINE [Concomitant]
     Active Substance: SERTRALINE HYDROCHLORIDE
     Dosage: 50 MG, UNK
     Route: 065
     Dates: start: 20161120
  33. SEPTRIN FORTE [Concomitant]
     Active Substance: SULFAMETHOXAZOLE\TRIMETHOPRIM
     Dosage: 960 MG, UNK
     Route: 065
     Dates: start: 20170117

REACTIONS (2)
  - Febrile neutropenia [Recovered/Resolved]
  - Neutropenia [Recovered/Resolved]

NARRATIVE: CASE EVENT DATE: 20160503
